FAERS Safety Report 17395826 (Version 1)
Quarter: 2020Q1

REPORT INFORMATION
  Report Type: Spontaneous
  Country: RO (occurrence: RO)
  Receive Date: 20200210
  Receipt Date: 20200210
  Transmission Date: 20200409
  Serious: Yes (Other)
  Sender: FDA-Public Use
  Company Number: NVSC2020RO033115

PATIENT
  Age: 51 Year
  Sex: Female

DRUGS (4)
  1. IFOSFAMIDE. [Suspect]
     Active Substance: IFOSFAMIDE
     Indication: LIPOSARCOMA
     Dosage: 7400 MG/M2, TOTAL DOSE
     Route: 065
     Dates: start: 2018
  2. MESNA. [Suspect]
     Active Substance: MESNA
     Indication: LIPOSARCOMA
     Dosage: 7400 MG/M2, TOTAL DOSE
     Route: 065
     Dates: start: 2018
  3. ZARZIO [Suspect]
     Active Substance: FILGRASTIM
     Indication: LIPOSARCOMA
     Dosage: 30000 IU/M2, TOTAL DOSE
     Route: 065
     Dates: start: 2018
  4. DOXORUBICIN [Suspect]
     Active Substance: DOXORUBICIN
     Indication: LIPOSARCOMA
     Dosage: 120 MG/M2, TOTAL DOSE
     Route: 065
     Dates: start: 2018

REACTIONS (1)
  - Cardiac failure acute [Not Recovered/Not Resolved]
